FAERS Safety Report 14454740 (Version 4)
Quarter: 2019Q1

REPORT INFORMATION
  Report Type: Spontaneous
  Country: US (occurrence: US)
  Receive Date: 20180129
  Receipt Date: 20190222
  Transmission Date: 20190417
  Serious: Yes (Hospitalization)
  Sender: FDA-Public Use
  Company Number: US-DSJP-DSU-2017-141437

PATIENT

DRUGS (1)
  1. BENICAR [Suspect]
     Active Substance: OLMESARTAN MEDOXOMIL
     Indication: PRODUCT USED FOR UNKNOWN INDICATION
     Dosage: 40 MG, QD
     Route: 048
     Dates: start: 20100712

REACTIONS (8)
  - Reactive gastropathy [Unknown]
  - Constipation [Not Recovered/Not Resolved]
  - Cholecystitis [Recovered/Resolved]
  - Acquired oesophageal web [Not Recovered/Not Resolved]
  - Rectal haemorrhage [Recovered/Resolved]
  - Sprue-like enteropathy [Recovering/Resolving]
  - Large intestine polyp [Not Recovered/Not Resolved]
  - Abdominal hernia [Recovering/Resolving]

NARRATIVE: CASE EVENT DATE: 20100729
